FAERS Safety Report 8012463-3 (Version None)
Quarter: 2011Q4

REPORT INFORMATION
  Report Type: 
  Country: None (occurrence: None)
  Receive Date: 20111228
  Receipt Date: 20111214
  Transmission Date: 20120403
  Serious: Yes (Congenital Anomaly)
  Sender: FDA-Public Use
  Company Number: US-AMGEN-USASP2011068395

PATIENT

DRUGS (10)
  1. CYCLOBENZAPRINE [Concomitant]
     Dosage: UNK
     Route: 064
  2. LEFLUNOMIDE [Concomitant]
     Dosage: UNK
     Route: 064
  3. CARISOPRODOL [Concomitant]
     Dosage: UNK
     Route: 064
  4. ENBREL [Suspect]
     Indication: PRODUCT USED FOR UNKNOWN INDICATION
     Dosage: UNK
     Route: 064
  5. PREDNISONE TAB [Concomitant]
     Dosage: UNK
     Route: 064
  6. LEVOFLOXACIN [Concomitant]
     Dosage: UNK
     Route: 064
  7. DEMEROL [Concomitant]
     Dosage: UNK
     Route: 064
  8. HYDROCHLOROTHIAZIDE [Concomitant]
     Dosage: UNK
     Route: 064
  9. PROPOXYPHENE HYDROCHLORIDE [Concomitant]
     Dosage: UNK
     Route: 064
  10. IBUPROFEN [Concomitant]
     Dosage: UNK
     Route: 064

REACTIONS (4)
  - VACTERL SYNDROME [None]
  - CONGENITAL CYSTIC KIDNEY DISEASE [None]
  - SINGLE FUNCTIONAL KIDNEY [None]
  - FOETAL EXPOSURE DURING PREGNANCY [None]
